FAERS Safety Report 7243491-3 (Version None)
Quarter: 2011Q1

REPORT INFORMATION
  Report Type: 
  Country: None (occurrence: None)
  Receive Date: 20110125
  Receipt Date: 20110111
  Transmission Date: 20110831
  Serious: Yes (Other)
  Sender: FDA-Public Use
  Company Number: CA-SANOFI-AVENTIS-2011SA002639

PATIENT

DRUGS (4)
  1. METHOTREXATE [Suspect]
     Route: 065
     Dates: start: 20090315
  2. ARAVA [Suspect]
     Route: 065
     Dates: start: 20091201, end: 20091209
  3. PLAQUENIL [Suspect]
     Route: 065
     Dates: start: 20090918
  4. ETANERCEPT [Suspect]
     Indication: RHEUMATOID ARTHRITIS

REACTIONS (4)
  - MALIGNANT MELANOMA [None]
  - COLON CANCER [None]
  - LUNG NEOPLASM MALIGNANT [None]
  - BREAST CANCER [None]
